FAERS Safety Report 5388107-6 (Version None)
Quarter: 2007Q3

REPORT INFORMATION
  Report Type: 
  Country: None (occurrence: None)
  Receive Date: 20070716
  Receipt Date: 20061123
  Transmission Date: 20080115
  Serious: No
  Sender: FDA-Public Use
  Company Number: A0628396A

PATIENT
  Age: 46 Year

DRUGS (1)
  1. NICORETTE (MINT) [Suspect]
     Dates: start: 20061121, end: 20061121

REACTIONS (6)
  - ABDOMINAL PAIN [None]
  - FEELING ABNORMAL [None]
  - HICCUPS [None]
  - NAUSEA [None]
  - OVERDOSE [None]
  - VOMITING [None]
